FAERS Safety Report 9285570 (Version 1)
Quarter: 2013Q2

REPORT INFORMATION
  Report Type: Report from Study
  Country: TR (occurrence: TR)
  Receive Date: 20130513
  Receipt Date: 20130513
  Transmission Date: 20140414
  Serious: Yes (Death, Hospitalization)
  Sender: FDA-Public Use
  Company Number: TR-US-EMD SERONO, INC.-7210101

PATIENT
  Age: 51 Year
  Sex: Female

DRUGS (4)
  1. REBIF [Suspect]
     Indication: RELAPSING-REMITTING MULTIPLE SCLEROSIS
     Route: 058
     Dates: start: 2006, end: 20130210
  2. LIORESAL [Suspect]
     Indication: PRODUCT USED FOR UNKNOWN INDICATION
     Route: 048
     Dates: end: 20130210
  3. VERMIDON [Suspect]
     Indication: HEADACHE
     Route: 048
     Dates: end: 20130210
  4. NUROFEN [Concomitant]
     Indication: HEADACHE
     Route: 048
     Dates: end: 20130210

REACTIONS (2)
  - Cerebral haemorrhage [Fatal]
  - Hypertension [Fatal]
